FAERS Safety Report 9863253 (Version 1)
Quarter: 2014Q1

REPORT INFORMATION
  Report Type: Report from Study
  Country: US (occurrence: US)
  Receive Date: 20140203
  Receipt Date: 20140203
  Transmission Date: 20141002
  Serious: Yes (Death)
  Sender: FDA-Public Use
  Company Number: US-ROCHE-1319221

PATIENT
  Age: 72 Year
  Sex: Female

DRUGS (13)
  1. AVASTIN [Suspect]
     Indication: OVARIAN CANCER
     Route: 042
     Dates: start: 20101110
  2. GEMZAR [Concomitant]
     Route: 042
     Dates: start: 20101110
  3. GEMZAR [Concomitant]
     Route: 042
     Dates: start: 20101207
  4. NEULASTA [Concomitant]
     Route: 042
     Dates: start: 20101111
  5. ACTONEL [Concomitant]
  6. AMBIEN [Concomitant]
  7. ASPIRIN [Concomitant]
  8. DILTIAZEM [Concomitant]
  9. LORTAB [Concomitant]
  10. MICRONASE [Concomitant]
  11. ZANTAC [Concomitant]
  12. ZESTRIL [Concomitant]
  13. PALONOSETRON [Concomitant]
     Dosage: 250 MCG
     Route: 042
     Dates: start: 20101120

REACTIONS (2)
  - Fatigue [Unknown]
  - Disease progression [Fatal]
